FAERS Safety Report 8501778-8 (Version None)
Quarter: 2012Q3

REPORT INFORMATION
  Report Type: 
  Country: None (occurrence: None)
  Receive Date: 20120705
  Receipt Date: 20120705
  Transmission Date: 20120928
  Serious: Yes (Other)
  Sender: FDA-Public Use
  Company Number: None

PATIENT
  Age: 38 Year
  Sex: Female

DRUGS (1)
  1. FOSAPREPITANT DIMEGLUMINE [Suspect]
     Indication: ANTIEMETIC SUPPORTIVE CARE
     Dosage: 150 MG X1 IV
     Route: 042
     Dates: start: 20120625, end: 20120625

REACTIONS (2)
  - DYSPNOEA [None]
  - FLUSHING [None]
